FAERS Safety Report 9080647 (Version 2)
Quarter: 2013Q3

REPORT INFORMATION
  Report Type: Spontaneous
  Country: FR (occurrence: FR)
  Receive Date: 20130131
  Receipt Date: 20130730
  Transmission Date: 20140515
  Serious: Yes (Hospitalization)
  Sender: FDA-Public Use
  Company Number: FR-B.I. PHARMACEUTICALS,INC./RIDGEFIELD-2013-FF-00174FF

PATIENT
  Age: 46 Year
  Sex: Female

DRUGS (6)
  1. VIRAMUNE [Suspect]
     Indication: HIV INFECTION
     Dates: start: 1999
  2. KIVEXA [Suspect]
     Indication: HIV INFECTION
     Dosage: 600MG/300MG
     Route: 048
     Dates: start: 20120104
  3. FENOFIBRATE [Suspect]
     Route: 048
  4. ALTEIS [Suspect]
     Route: 048
  5. ZANIDIP [Suspect]
     Route: 048
  6. PROZAC [Suspect]
     Route: 048

REACTIONS (1)
  - Pulmonary embolism [Recovered/Resolved]
